FAERS Safety Report 24729395 (Version 5)
Quarter: 2025Q1

REPORT INFORMATION
  Report Type: Report from Study
  Country: SE (occurrence: SE)
  Receive Date: 20241213
  Receipt Date: 20250216
  Transmission Date: 20250409
  Serious: Yes (Other)
  Sender: ABBVIE
  Company Number: SE-ABBVIE-6042298

PATIENT
  Age: 62 Year
  Sex: Male

DRUGS (7)
  1. FOSCARBIDOPA\FOSLEVODOPA [Suspect]
     Active Substance: FOSCARBIDOPA\FOSLEVODOPA
     Indication: Parkinson^s disease
     Route: 058
     Dates: start: 20241202, end: 20241202
  2. FOSCARBIDOPA\FOSLEVODOPA [Suspect]
     Active Substance: FOSCARBIDOPA\FOSLEVODOPA
     Route: 058
     Dates: start: 20241203, end: 20241203
  3. FOSCARBIDOPA\FOSLEVODOPA [Suspect]
     Active Substance: FOSCARBIDOPA\FOSLEVODOPA
     Route: 058
     Dates: start: 20241204, end: 202501
  4. FOSCARBIDOPA\FOSLEVODOPA [Suspect]
     Active Substance: FOSCARBIDOPA\FOSLEVODOPA
     Route: 058
     Dates: start: 202501
  5. ONGENTYS [Concomitant]
     Active Substance: OPICAPONE
     Indication: Product used for unknown indication
     Dates: start: 20241203
  6. Levodopa/Benserazide (Madopark) [Concomitant]
     Indication: Product used for unknown indication
     Dates: start: 20241203
  7. Levodopa/Benserazide (Madopark quick) [Concomitant]
     Indication: Product used for unknown indication
     Dates: start: 202412

REACTIONS (10)
  - Depressed level of consciousness [Unknown]
  - Fatigue [Unknown]
  - Infusion site swelling [Not Recovered/Not Resolved]
  - Hyperkinesia [Unknown]
  - Infusion site pain [Unknown]
  - Muscle spasms [Unknown]
  - Infusion site papule [Unknown]
  - Device difficult to use [Unknown]
  - Infusion site reaction [Unknown]
  - Fatigue [Unknown]

NARRATIVE: CASE EVENT DATE: 20241201
